FAERS Safety Report 6415383-0 (Version None)
Quarter: 2009Q4

REPORT INFORMATION
  Report Type: 
  Country: None (occurrence: None)
  Receive Date: 20091027
  Receipt Date: 20091016
  Transmission Date: 20100525
  Serious: Yes (Hospitalization, Other)
  Sender: FDA-Public Use
  Company Number: GB-BAYER-200936385GPV

PATIENT
  Age: 40 Year
  Sex: Female

DRUGS (8)
  1. FLUDARABINE [Suspect]
     Indication: PANCREATIC CARCINOMA METASTATIC
     Dosage: 25 MG/M2
     Route: 042
     Dates: start: 20090918, end: 20090922
  2. CYCLOPHOSPHAMIDE [Suspect]
     Indication: PANCREATIC CARCINOMA METASTATIC
     Dosage: 60 MG/M2/KG
     Route: 042
     Dates: start: 20090916, end: 20090917
  3. MFEZ T CELLS [Suspect]
     Indication: PANCREATIC CARCINOMA METASTATIC
     Route: 042
     Dates: start: 20090923, end: 20090923
  4. INTERLEUKIN-2 [Suspect]
     Indication: PANCREATIC CARCINOMA METASTATIC
     Dosage: 45 MIU DECREASED INCREMENTALLY TO 22.5 MIU
     Route: 042
     Dates: start: 20090923, end: 20090926
  5. MEROPENEM [Concomitant]
     Indication: ANTIBIOTIC PROPHYLAXIS
     Dosage: TOTAL DAILY DOSE: 3 G
     Route: 042
     Dates: start: 20090918, end: 20090928
  6. MEROPENEM [Concomitant]
     Dosage: TOTAL DAILY DOSE: 3 G
     Route: 042
     Dates: start: 20091004, end: 20091012
  7. TEICOPLANIN [Concomitant]
     Indication: ANTIBIOTIC PROPHYLAXIS
     Dates: start: 20090918, end: 20090919
  8. TEICOPLANIN [Concomitant]
     Dates: start: 20090923, end: 20090928

REACTIONS (4)
  - BLOOD BILIRUBIN INCREASED [None]
  - CLOSTRIDIUM DIFFICILE COLITIS [None]
  - NEUTROPENIC SEPSIS [None]
  - PLATELET COUNT DECREASED [None]
